FAERS Safety Report 8619610-0 (Version None)
Quarter: 2012Q3

REPORT INFORMATION
  Report Type: 
  Country: None (occurrence: None)
  Receive Date: 20120824
  Receipt Date: 20120810
  Transmission Date: 20120928
  Serious: No
  Sender: FDA-Public Use
  Company Number: US-JNJFOC-20120709978

PATIENT
  Sex: Female
  Weight: 61.24 kg

DRUGS (9)
  1. HYDROCODONE BITARTRATE [Concomitant]
     Indication: BREAKTHROUGH PAIN
     Dosage: 10-325 MG AS NEEDED/DAILY
     Route: 048
     Dates: start: 20020101
  2. CALCIUM [Concomitant]
     Indication: NUTRITIONAL SUPPORT
     Route: 048
  3. RECLIPSEN [Concomitant]
     Indication: CONTRACEPTION
     Route: 048
  4. FENTANYL-100 [Suspect]
     Indication: BACK PAIN
     Route: 062
     Dates: start: 20120714
  5. GLUCOSAMINE [Concomitant]
     Indication: ARTHRITIS
     Route: 048
  6. FENTANYL-100 [Suspect]
     Indication: PAIN IN EXTREMITY
     Route: 062
     Dates: start: 20120714
  7. ATENOLOL [Concomitant]
     Indication: HYPERTENSION
     Route: 048
     Dates: start: 19720101
  8. VITAMINS (NOS) [Concomitant]
     Indication: NUTRITIONAL SUPPORT
     Route: 048
  9. LOVAZA [Concomitant]
     Route: 048

REACTIONS (2)
  - PRODUCT QUALITY ISSUE [None]
  - WRONG TECHNIQUE IN DRUG USAGE PROCESS [None]
